FAERS Safety Report 10959859 (Version 1)
Quarter: 2015Q1

REPORT INFORMATION
  Report Type: Spontaneous
  Country: US (occurrence: None)
  Receive Date: 20150325
  Receipt Date: 20150325
  Transmission Date: 20150721
  Serious: Yes (Life-Threatening, Hospitalization, Other)
  Sender: FDA-Public Use
  Company Number: 2015NOV00001

PATIENT
  Age: 39 Year
  Sex: Male

DRUGS (1)
  1. HYDROCODONE BITARTRATE AND ACETAMINOPHEN [Suspect]
     Active Substance: ACETAMINOPHEN\HYDROCODONE BITARTRATE
     Dosage: 50 TABLETS
     Route: 048

REACTIONS (11)
  - Electrocardiogram QT prolonged [None]
  - Acute myocardial infarction [None]
  - Hyperkalaemia [None]
  - Bundle branch block right [None]
  - Intentional overdose [None]
  - QRS axis abnormal [None]
  - Electrocardiogram P wave abnormal [None]
  - Electrocardiogram QRS complex prolonged [None]
  - Hypocalcaemia [None]
  - Rhabdomyolysis [None]
  - Suicide attempt [None]
